FAERS Safety Report 4820527-8 (Version None)
Quarter: 2005Q4

REPORT INFORMATION
  Report Type: 
  Country: None (occurrence: None)
  Receive Date: 20051104
  Receipt Date: 20051026
  Transmission Date: 20060501
  Serious: Yes (Hospitalization)
  Sender: FDA-Public Use
  Company Number: PHHO2005BR17109

PATIENT
  Age: 66 Year
  Sex: Female

DRUGS (2)
  1. TRILEPTAL [Suspect]
     Dosage: 300 MG, 10
  2. TRILEPTAL [Suspect]
     Dosage: 600 MG, UNK

REACTIONS (1)
  - DEPRESSION [None]
